FAERS Safety Report 7304496-7 (Version None)
Quarter: 2011Q1

REPORT INFORMATION
  Report Type: 
  Country: None (occurrence: None)
  Receive Date: 20110221
  Receipt Date: 20110215
  Transmission Date: 20110831
  Serious: Yes (Death, Hospitalization)
  Sender: FDA-Public Use
  Company Number: US-SANOFI-AVENTIS-2011SA010230

PATIENT
  Age: 69 Year
  Sex: Male
  Weight: 56.36 kg

DRUGS (29)
  1. TAXOTERE [Suspect]
     Dosage: EVERY 21 DAYS
     Route: 041
     Dates: start: 20110101, end: 20110101
  2. LANTUS [Concomitant]
     Indication: DIABETES MELLITUS
     Dosage: DOSE:15 UNIT(S)
     Route: 058
     Dates: start: 20040401
  3. XALATAN [Concomitant]
     Dates: start: 20081001
  4. COMPAZINE [Concomitant]
     Indication: NAUSEA
     Dosage: EVERY 4 TO 6 HOURS AS NEEDED
     Route: 048
     Dates: start: 20101130
  5. AVASTIN [Suspect]
     Dosage: EVERY 21 DAYS
     Route: 042
     Dates: start: 20101130, end: 20101130
  6. LASIX [Concomitant]
     Route: 048
     Dates: start: 20060801
  7. ATORVASTATIN [Concomitant]
     Route: 048
     Dates: start: 20030501
  8. MAGNESIUM OXIDE [Concomitant]
     Indication: CONSTIPATION
     Route: 048
     Dates: start: 20101206
  9. DIPHENHYDRAMINE HYDROCHLORIDE [Concomitant]
     Indication: RASH
     Route: 048
     Dates: start: 20101201
  10. AVENO [Concomitant]
     Indication: RASH
     Dosage: TUB
     Dates: start: 20101201
  11. AVASTIN [Suspect]
     Dosage: EVERY 21 DAYS
     Route: 042
     Dates: start: 20110101, end: 20110101
  12. CARBOPLATIN [Suspect]
     Dosage: EVERY 21 DAYS
     Route: 042
     Dates: start: 20101130, end: 20101130
  13. SENOKOT [Concomitant]
     Indication: CONSTIPATION
     Route: 048
     Dates: start: 20101204
  14. ALL OTHER THERAPEUTIC PRODUCTS [Concomitant]
     Indication: PROPHYLAXIS
     Route: 048
     Dates: start: 20101228
  15. TAXOTERE [Suspect]
     Dosage: EVERY 21 DAYS
     Route: 041
     Dates: start: 20101130, end: 20101130
  16. DEXAMETHASONE [Concomitant]
     Dosage: 4 MG  2 TABS PO TWICE A DAY
     Route: 048
     Dates: start: 20101130
  17. CARBOPLATIN [Suspect]
     Dosage: EVERY 21 DAYS
     Route: 042
     Dates: start: 20101130, end: 20101130
  18. CARBOPLATIN [Suspect]
     Dosage: EVERY 21 DAYS
     Route: 042
     Dates: start: 20101201, end: 20101201
  19. ASA [Concomitant]
     Indication: CARDIAC PACEMAKER INSERTION
     Route: 048
     Dates: start: 20081001
  20. AVASTIN [Suspect]
     Dosage: EVERY 21 DAYS
     Route: 042
     Dates: start: 20101201, end: 20101201
  21. IPRATROPIUM BROMIDE/SALBUTAMOL SULFATE [Concomitant]
     Dosage: 18/103 2 PUFFS INHALED PRN
     Dates: start: 20060601
  22. VICODIN [Concomitant]
     Indication: PAIN
     Dosage: 5/325 PO EVERY 4 HOURS AS NEEDED
     Route: 048
     Dates: start: 20101125
  23. MEGACE [Concomitant]
     Route: 048
     Dates: start: 20110104
  24. ALTACE [Concomitant]
     Route: 048
     Dates: start: 20050501
  25. DIGOXIN [Concomitant]
     Route: 048
     Dates: start: 20090101
  26. COLACE [Concomitant]
     Indication: CONSTIPATION
     Route: 048
     Dates: start: 20091201
  27. TAXOTERE [Suspect]
     Dosage: EVERY 21 DAYS
     Route: 041
     Dates: start: 20101201, end: 20101201
  28. VITAMIN D [Concomitant]
     Indication: NUTRITIONAL SUPPORT
     Route: 048
     Dates: start: 20081001
  29. METAMUCIL-2 [Concomitant]
     Indication: CONSTIPATION
     Route: 048
     Dates: start: 20101202

REACTIONS (5)
  - HYPOKALAEMIA [None]
  - DECREASED APPETITE [None]
  - DEHYDRATION [None]
  - ASTHENIA [None]
  - PANCYTOPENIA [None]
